FAERS Safety Report 7497040-5 (Version None)
Quarter: 2011Q2

REPORT INFORMATION
  Report Type: 
  Country: None (occurrence: None)
  Receive Date: 20110523
  Receipt Date: 20110518
  Transmission Date: 20111010
  Serious: Yes (Death)
  Sender: FDA-Public Use
  Company Number: NL-GENZYME-FLUD-1001173

PATIENT

DRUGS (4)
  1. FLUDARA [Suspect]
     Indication: STEM CELL TRANSPLANT
  2. MELPHALAN HYDROCHLORIDE [Suspect]
     Indication: COELIAC DISEASE
     Dosage: UNK
     Route: 065
  3. MELPHALAN HYDROCHLORIDE [Suspect]
     Indication: STEM CELL TRANSPLANT
  4. FLUDARA [Suspect]
     Indication: COELIAC DISEASE
     Dosage: UNK
     Route: 065

REACTIONS (1)
  - INTESTINAL T-CELL LYMPHOMA [None]
